FAERS Safety Report 21127960 (Version 1)
Quarter: 2022Q3

REPORT INFORMATION
  Report Type: Spontaneous
  Country: US (occurrence: US)
  Receive Date: 20220725
  Receipt Date: 20220725
  Transmission Date: 20221027
  Serious: No
  Sender: FDA-Public Use
  Company Number: US-ABBVIE-22K-163-4369629-00

PATIENT
  Sex: Female

DRUGS (1)
  1. SYNTHROID [Suspect]
     Active Substance: LEVOTHYROXINE SODIUM
     Indication: Product used for unknown indication
     Route: 048

REACTIONS (7)
  - General physical health deterioration [Unknown]
  - Muscle atrophy [Unknown]
  - Depression [Unknown]
  - Rash [Unknown]
  - Alopecia [Unknown]
  - Anxiety [Unknown]
  - Adverse drug reaction [Unknown]
